FAERS Safety Report 5487490-0 (Version None)
Quarter: 2007Q4

REPORT INFORMATION
  Report Type: 
  Country: None (occurrence: None)
  Receive Date: 20071016
  Receipt Date: 20071004
  Transmission Date: 20080405
  Serious: Yes (Other)
  Sender: FDA-Public Use
  Company Number: US-PFIZER INC-2007077610

PATIENT
  Sex: Female

DRUGS (5)
  1. NIFEDIPINE [Suspect]
     Indication: HYPERTENSION
     Route: 048
  2. HYDROCHLOROTHIAZIDE [Suspect]
     Indication: HYPERTENSION
     Route: 048
     Dates: start: 19900101
  3. LISINOPRIL [Suspect]
     Indication: HYPERTENSION
  4. OXYCONTIN [Concomitant]
  5. MOTRIN [Concomitant]

REACTIONS (2)
  - BLOOD PRESSURE INADEQUATELY CONTROLLED [None]
  - SPINAL FUSION SURGERY [None]
